FAERS Safety Report 8532623-2 (Version None)
Quarter: 2012Q3

REPORT INFORMATION
  Report Type: 
  Country: None (occurrence: None)
  Receive Date: 20120724
  Receipt Date: 20120712
  Transmission Date: 20120928
  Serious: Yes (Hospitalization, Other)
  Sender: FDA-Public Use
  Company Number: US-BAYER-2012-072420

PATIENT
  Age: 37 Year
  Sex: Female
  Weight: 136.5 kg

DRUGS (21)
  1. MOBIC [Concomitant]
     Indication: PLANTAR FASCIITIS
     Dosage: 15 MG, UNK
     Route: 048
     Dates: start: 20090806
  2. LEXAPRO [Concomitant]
     Indication: DEPRESSION
     Dosage: 2 MG, UNK
     Route: 048
     Dates: start: 20090806
  3. LOESTRIN 24 FE [Concomitant]
     Dosage: UNK
  4. REGLAN [Concomitant]
     Indication: GASTROOESOPHAGEAL REFLUX DISEASE
     Dosage: 10 MG, UNK
     Route: 048
     Dates: start: 20090806
  5. CORGARD [Concomitant]
     Dosage: 40 MG, UNK
     Route: 048
     Dates: start: 20090713
  6. NORCO [Concomitant]
     Route: 048
  7. SULFAMETHOXAZOLE AND TRIMETHOPRIM [Concomitant]
     Dosage: 800/160 MG
     Route: 048
     Dates: start: 20090729
  8. ATIVAN [Concomitant]
     Dosage: 1 MG, UNK
     Route: 048
     Dates: start: 20090709
  9. AMBIEN [Concomitant]
     Dosage: 10 MG, UNK
     Route: 048
  10. OMEPRAZOLE [Concomitant]
     Indication: GASTROOESOPHAGEAL REFLUX DISEASE
     Dosage: 20 MG, UNK
     Route: 048
     Dates: start: 20090806
  11. PREVACID [Concomitant]
     Dosage: 30 MG, UNK
     Route: 048
     Dates: start: 20090713
  12. ANCEF [Concomitant]
     Dosage: 1 G, UNK
     Route: 040
  13. NADOLOL [Concomitant]
     Indication: PALPITATIONS
     Dosage: 40 MG, UNK
     Route: 048
     Dates: start: 20090806
  14. LOESTRIN 1.5/30 [Concomitant]
     Dosage: UNK
  15. FENTANYL [Concomitant]
     Dosage: 100 ?G, UNK
     Route: 040
     Dates: start: 20090713
  16. MORPHINE SULFATE [Concomitant]
     Route: 040
  17. METFORMIN HYDROCHLORIDE [Concomitant]
     Dosage: 500 MG, UNK
     Route: 048
     Dates: start: 20090709
  18. YASMIN [Suspect]
  19. VERSED [Concomitant]
     Dosage: 2 MG, UNK
     Route: 040
  20. VICODIN [Concomitant]
     Dosage: 7.5/750 MG
     Route: 048
     Dates: start: 20090806
  21. CLONAZEPAM [Concomitant]
     Dosage: 20 MG, UNK
     Route: 048
     Dates: start: 20090619, end: 20090730

REACTIONS (3)
  - PULMONARY EMBOLISM [None]
  - DEEP VEIN THROMBOSIS [None]
  - GALLBLADDER DISORDER [None]
